FAERS Safety Report 8369011-8 (Version None)
Quarter: 2012Q2

REPORT INFORMATION
  Report Type: 
  Country: None (occurrence: None)
  Receive Date: 20120516
  Receipt Date: 20120516
  Transmission Date: 20120825
  Serious: Yes (Hospitalization)
  Sender: FDA-Public Use
  Company Number: None

PATIENT
  Age: 63 Year
  Sex: Male
  Weight: 87.0906 kg

DRUGS (1)
  1. CRESTOR [Suspect]
     Indication: STENT PLACEMENT
     Dosage: 10 MG ONCE PER DAY
     Dates: start: 20120412, end: 20120515

REACTIONS (6)
  - NAUSEA [None]
  - CHILLS [None]
  - HEART RATE ABNORMAL [None]
  - BLOOD PRESSURE ABNORMAL [None]
  - MUSCLE SPASMS [None]
  - DIZZINESS [None]
